FAERS Safety Report 6071809-6 (Version None)
Quarter: 2009Q1

REPORT INFORMATION
  Report Type: 
  Country: None (occurrence: None)
  Receive Date: 20090210
  Receipt Date: 20090130
  Transmission Date: 20090719
  Serious: Yes (Hospitalization)
  Sender: FDA-Public Use
  Company Number: PHHY2009CH03347

PATIENT
  Age: 48 Year
  Sex: Male

DRUGS (6)
  1. TEGRETOL [Suspect]
     Indication: EPILEPSY
     Dosage: 800 MG/DAY
  2. DAFALGAN [Interacting]
     Indication: PAIN
     Dosage: 4000 MG/DAY
     Dates: start: 20081206, end: 20081211
  3. LAMICTAL [Concomitant]
     Indication: EPILEPSY
     Dosage: 200 MG/DAY
  4. BRUFEN [Concomitant]
     Indication: PAIN
     Dosage: 1800 MG/DAY
     Dates: start: 20081206, end: 20081212
  5. NEXIUM [Concomitant]
     Dosage: 40 MG/DAY
     Dates: start: 20081206, end: 20081212
  6. TRAMADOL HCL [Concomitant]
     Indication: PAIN
     Dosage: 200 MG/DAY
     Dates: start: 20081206, end: 20081212

REACTIONS (7)
  - CLAVICLE FRACTURE [None]
  - DRUG INTERACTION [None]
  - DRUG LEVEL INCREASED [None]
  - GAMMA-GLUTAMYLTRANSFERASE INCREASED [None]
  - SURGERY [None]
  - URINARY TRACT INFECTION [None]
  - VERTIGO [None]
